FAERS Safety Report 9698224 (Version 1)
Quarter: 2013Q4

REPORT INFORMATION
  Report Type: Spontaneous
  Country: US (occurrence: US)
  Receive Date: 20131120
  Receipt Date: 20131120
  Transmission Date: 20140711
  Serious: No
  Sender: FDA-Public Use
  Company Number: US-ENDO PHARMACEUTICALS INC.-CARI20120005

PATIENT
  Age: 42 Year
  Sex: Female

DRUGS (2)
  1. CARISOPRODOL TABLETS 350MG [Suspect]
     Indication: PRODUCT USED FOR UNKNOWN INDICATION
     Route: 048
     Dates: start: 20120711, end: 20120711
  2. CARISOPRODOL TABLETS 350MG [Suspect]
     Route: 048
     Dates: start: 201105, end: 20120710

REACTIONS (2)
  - Oedema mouth [Recovered/Resolved]
  - Gingival swelling [Recovered/Resolved]
